FAERS Safety Report 4720591-0 (Version None)
Quarter: 2005Q3

REPORT INFORMATION
  Report Type: 
  Country: None (occurrence: None)
  Receive Date: 20050721
  Receipt Date: 20050711
  Transmission Date: 20060218
  Serious: Yes (Hospitalization)
  Sender: FDA-Public Use
  Company Number: ES-BRISTOL-MYERS SQUIBB COMPANY-13037148

PATIENT
  Age: 28 Year
  Sex: Male

DRUGS (3)
  1. ABILIFY [Suspect]
     Indication: PSYCHOTIC DISORDER
     Dosage: INITIATED AT 10 MG/DAY
     Route: 048
     Dates: start: 20050204
  2. RISPERDAL [Concomitant]
     Route: 048
     Dates: start: 20050204, end: 20050204
  3. TRANXILIUM [Concomitant]
     Indication: ANXIETY
     Route: 048
     Dates: start: 20050204

REACTIONS (1)
  - NEPHRITIS [None]
